FAERS Safety Report 6685362-7 (Version None)
Quarter: 2010Q2

REPORT INFORMATION
  Report Type: 
  Country: None (occurrence: None)
  Receive Date: 20100416
  Receipt Date: 20100408
  Transmission Date: 20101027
  Serious: Yes (Other)
  Sender: FDA-Public Use
  Company Number: US-AMGEN-QUU404621

PATIENT
  Sex: Female

DRUGS (1)
  1. ENBREL [Suspect]
     Indication: RHEUMATOID ARTHRITIS
     Route: 058
     Dates: start: 19990801

REACTIONS (6)
  - DIARRHOEA [None]
  - LUNG NEOPLASM [None]
  - ORAL CANDIDIASIS [None]
  - PHARYNGITIS [None]
  - UNEVALUABLE EVENT [None]
  - WEIGHT DECREASED [None]
